FAERS Safety Report 5848591-8 (Version None)
Quarter: 2008Q3

REPORT INFORMATION
  Report Type: 
  Country: None (occurrence: None)
  Receive Date: 20080818
  Receipt Date: 20080805
  Transmission Date: 20090109
  Serious: Yes (Other)
  Sender: FDA-Public Use
  Company Number: JP-ROCHE-575383

PATIENT
  Sex: Male
  Weight: 44 kg

DRUGS (6)
  1. XELODA [Suspect]
     Indication: COLON CANCER
     Dosage: DRUG NAME REPORTED AS: XELODA 300
     Route: 048
     Dates: start: 20080310, end: 20080609
  2. XELODA [Suspect]
     Route: 048
     Dates: start: 20080714, end: 20080720
  3. SENNOSIDE [Concomitant]
     Route: 048
     Dates: start: 20080623
  4. MAGNESIUM OXIDE [Concomitant]
     Route: 048
     Dates: start: 20080804
  5. PYDOXAL [Concomitant]
     Route: 048
     Dates: start: 20080310, end: 20080601
  6. PYDOXAL [Concomitant]
     Route: 048
     Dates: start: 20080714, end: 20080720

REACTIONS (2)
  - SCROTAL PAIN [None]
  - SCROTAL ULCER [None]
